FAERS Safety Report 7011645-7 (Version None)
Quarter: 2010Q3

REPORT INFORMATION
  Report Type: 
  Country: None (occurrence: None)
  Receive Date: 20100923
  Receipt Date: 20090415
  Transmission Date: 20110219
  Serious: No
  Sender: FDA-Public Use
  Company Number: US-WYE-H08999609

PATIENT
  Sex: Female

DRUGS (4)
  1. ADVIL COLD AND SINUS [Suspect]
     Indication: HYPERSENSITIVITY
     Dosage: 1 CAPLET AS NEEDED
     Route: 048
     Dates: end: 20090414
  2. SINGULAIR [Concomitant]
  3. ORAL CONTRACEPTIVE NOS [Concomitant]
  4. ZYRTEC [Concomitant]

REACTIONS (1)
  - COELIAC DISEASE [None]
